FAERS Safety Report 4821024-6 (Version None)
Quarter: 2005Q4

REPORT INFORMATION
  Report Type: 
  Country: None (occurrence: None)
  Receive Date: 20051103
  Receipt Date: 20051103
  Transmission Date: 20060501
  Serious: Yes (Life-Threatening, Hospitalization)
  Sender: FDA-Public Use
  Company Number: None

PATIENT
  Age: 64 Year
  Sex: Female
  Weight: 56.7 kg

DRUGS (2)
  1. ALDACTONE [Suspect]
  2. FOSINOPRIL [Suspect]
     Indication: HYPERTENSION
     Dosage: 40 MG, TAKE ONE, ORAL
     Route: 048
     Dates: start: 20030723, end: 20050503

REACTIONS (1)
  - HYPERKALAEMIA [None]
